FAERS Safety Report 4757493-X (Version None)
Quarter: 2005Q3

REPORT INFORMATION
  Report Type: 
  Country: None (occurrence: None)
  Receive Date: 20050831
  Receipt Date: 20050829
  Transmission Date: 20060218
  Serious: Yes (Hospitalization, Other)
  Sender: FDA-Public Use
  Company Number: JP-SANOFI-SYNTHELABO-F01200501717

PATIENT
  Age: 67 Year
  Sex: Male
  Weight: 60 kg

DRUGS (4)
  1. OXALIPLATIN [Suspect]
     Indication: RECTAL CANCER
     Dosage: 120 MG
     Route: 042
     Dates: start: 20050711, end: 20050711
  2. FLUOROURACIL [Suspect]
     Indication: RECTAL CANCER
     Dosage: 560 MG
     Route: 042
     Dates: start: 20050711, end: 20050712
  3. FLUOROURACIL [Suspect]
     Dosage: 840 MG
     Route: 042
     Dates: start: 20050711, end: 20050712
  4. CALCIUM LEVOFOLINATE [Suspect]
     Indication: RECTAL CANCER
     Dosage: 140 MG
     Route: 042
     Dates: start: 20050711, end: 20050712

REACTIONS (2)
  - BRADYCARDIA [None]
  - LOSS OF CONSCIOUSNESS [None]
